FAERS Safety Report 7204658-3 (Version None)
Quarter: 2010Q4

REPORT INFORMATION
  Report Type: 
  Country: None (occurrence: None)
  Receive Date: 20101230
  Receipt Date: 20101215
  Transmission Date: 20110411
  Serious: No
  Sender: FDA-Public Use
  Company Number: US-PFIZER INC-2010173906

PATIENT
  Sex: Male

DRUGS (4)
  1. LIPITOR [Suspect]
     Dosage: 20MG SOMETIMES 40MG
     Dates: start: 19970101
  2. ISOSORBIDE [Concomitant]
     Dosage: 40 MG 2 A DAY
  3. ASPIRIN [Concomitant]
     Dosage: 2 A DAY
  4. TAMSULOSIN [Concomitant]
     Dosage: 0.4 MG, 1X/DAY

REACTIONS (1)
  - ARTHRALGIA [None]
